FAERS Safety Report 8349124-7 (Version None)
Quarter: 2012Q2

REPORT INFORMATION
  Report Type: 
  Country: None (occurrence: None)
  Receive Date: 20120508
  Receipt Date: 20120424
  Transmission Date: 20120825
  Serious: Yes (Hospitalization)
  Sender: FDA-Public Use
  Company Number: NGX_01078_2012

PATIENT
  Sex: Female
  Weight: 82 kg

DRUGS (6)
  1. QUTENZA [Suspect]
     Indication: POLYNEUROPATHY
     Dosage: (DF [BIMONTHLY APPLICATION] TOPICAL)
     Route: 061
     Dates: start: 20120209, end: 20120209
  2. STUDY DRUG [Suspect]
     Indication: POLYNEUROPATHY
     Dosage: (DF)
  3. ANOPYRIN [Concomitant]
  4. HUMULIN R [Concomitant]
  5. LANTUS [Concomitant]
  6. AMPRILAN [Concomitant]

REACTIONS (2)
  - CHEST PAIN [None]
  - HYPERTENSION [None]
